FAERS Safety Report 6477775-3 (Version None)
Quarter: 2009Q4

REPORT INFORMATION
  Report Type: 
  Country: None (occurrence: None)
  Receive Date: 20091207
  Receipt Date: 20091127
  Transmission Date: 20100525
  Serious: Yes (Other)
  Sender: FDA-Public Use
  Company Number: BR-ELI_LILLY_AND_COMPANY-BR200911003740

PATIENT
  Sex: Female

DRUGS (4)
  1. HUMULIN N [Suspect]
     Indication: DIABETES MELLITUS
     Dosage: 16 IU, UNKNOWN
     Route: 065
  2. HUMULIN N [Suspect]
     Dosage: 20 IU, UNKNOWN
     Route: 065
  3. VILDAGLIPTIN [Concomitant]
     Indication: DIABETES MELLITUS
     Dosage: UNK, UNKNOWN
     Route: 065
  4. METFORMIN HYDROCHLORIDE [Concomitant]
     Indication: DIABETES MELLITUS
     Dosage: UNK, UNKNOWN
     Route: 065

REACTIONS (12)
  - ARTERIAL OCCLUSIVE DISEASE [None]
  - BLOOD GLUCOSE INCREASED [None]
  - COMA [None]
  - DEVICE BREAKAGE [None]
  - FEELING COLD [None]
  - FEMUR FRACTURE [None]
  - HYPERGLYCAEMIA [None]
  - HYPERHIDROSIS [None]
  - OSTEOPOROSIS [None]
  - PALLOR [None]
  - SOMNOLENCE [None]
  - URINARY TRACT INFECTION [None]
